FAERS Safety Report 21769536 (Version 3)
Quarter: 2023Q1

REPORT INFORMATION
  Report Type: Report from Study
  Country: BR (occurrence: BR)
  Receive Date: 20221223
  Receipt Date: 20230209
  Transmission Date: 20230417
  Serious: Yes (Other)
  Sender: FDA-Public Use
  Company Number: BR-ABBVIE-4247713

PATIENT
  Age: 13 Year
  Sex: Female
  Weight: 50 kg

DRUGS (1)
  1. RINVOQ [Suspect]
     Active Substance: UPADACITINIB
     Indication: Dermatitis atopic
     Dosage: 15 MILLIGRAM
     Route: 048
     Dates: start: 20220711, end: 20221207

REACTIONS (9)
  - Seizure [Recovered/Resolved]
  - Tremor [Recovered/Resolved]
  - Shock [Recovered/Resolved]
  - Musculoskeletal disorder [Recovered/Resolved]
  - Syncope [Recovered/Resolved]
  - Psychomotor retardation [Recovered/Resolved]
  - Eye movement disorder [Recovered/Resolved]
  - Loss of consciousness [Recovered/Resolved]
  - Tremor [Recovered/Resolved]

NARRATIVE: CASE EVENT DATE: 20220801
